FAERS Safety Report 5276779-6 (Version None)
Quarter: 2007Q1

REPORT INFORMATION
  Report Type: 
  Country: None (occurrence: None)
  Receive Date: 20070327
  Receipt Date: 20070319
  Transmission Date: 20070707
  Serious: Yes (Hospitalization)
  Sender: FDA-Public Use
  Company Number: US-AVENTIS-200711947US

PATIENT
  Sex: Male
  Weight: 70.45 kg

DRUGS (10)
  1. KETEK [Suspect]
     Indication: BRONCHITIS
     Dosage: DOSE: 2 TABS
     Route: 048
     Dates: start: 20061201, end: 20061201
  2. LANTUS [Concomitant]
     Dosage: DOSE: UNK
  3. HUMALOG                            /00030501/ [Concomitant]
     Dosage: DOSE: WITH MEALS
  4. FUROSEMIDE [Concomitant]
     Dosage: DOSE: 40 MG (1 TAB)
  5. DIGOXIN [Concomitant]
     Dosage: DOSE: UNK
  6. LEVOTHYROXINE SODIUM [Concomitant]
     Dosage: DOSE: 1 TAB
  7. ISOSORBIDE MONONITRATE [Concomitant]
     Dosage: DOSE: 1 TAB
  8. CAPTOPRIL [Concomitant]
     Dosage: DOSE: UNK
  9. COREG [Concomitant]
     Dosage: DOSE: 1/2 TAB
  10. POTASSIUM ACETATE [Concomitant]
     Dosage: DOSE: WITH MEALS

REACTIONS (3)
  - DRUG INEFFECTIVE [None]
  - PNEUMONIA [None]
  - VISION BLURRED [None]
